FAERS Safety Report 5408032-1 (Version None)
Quarter: 2007Q3

REPORT INFORMATION
  Report Type: 
  Country: None (occurrence: None)
  Receive Date: 20070808
  Receipt Date: 20070731
  Transmission Date: 20080115
  Serious: Yes (Other)
  Sender: FDA-Public Use
  Company Number: PHBS2007JP11691

PATIENT
  Age: 40 Year
  Sex: Female

DRUGS (5)
  1. PARLODEL [Suspect]
     Indication: HYPERPROLACTINAEMIA
     Dosage: 7.5 MG/DAY
     Route: 048
     Dates: start: 20070615, end: 20070703
  2. PAXIL [Concomitant]
     Dosage: 20 MG, UNK
     Route: 048
     Dates: start: 20070404, end: 20070502
  3. FLUVOXAMINE MALEATE [Concomitant]
     Indication: DEPRESSION
     Dosage: 75 MG, UNK
     Route: 048
     Dates: start: 20070615
  4. DOGMATYL [Concomitant]
     Indication: DEPRESSION
     Dosage: 150 MG, UNK
     Route: 048
     Dates: start: 20070615
  5. NAUZELIN [Concomitant]
     Indication: NAUSEA
     Dosage: 30 MG, UNK
     Route: 048
     Dates: start: 20070615, end: 20070720

REACTIONS (2)
  - ANGIOEDEMA [None]
  - LYMPHADENOPATHY [None]
